FAERS Safety Report 6613822-3 (Version None)
Quarter: 2010Q1

REPORT INFORMATION
  Report Type: 
  Country: None (occurrence: None)
  Receive Date: 20100304
  Receipt Date: 20100226
  Transmission Date: 20100710
  Serious: Yes (Hospitalization, Other)
  Sender: FDA-Public Use
  Company Number: BR-SANOFI-AVENTIS-2010SA011530

PATIENT
  Sex: Female
  Weight: 50 kg

DRUGS (14)
  1. LANTUS [Suspect]
     Indication: TYPE 1 DIABETES MELLITUS
     Route: 058
     Dates: start: 20000101
  2. OPTIPEN [Suspect]
     Dates: start: 20000101
  3. LANTUS [Suspect]
     Indication: TYPE 1 DIABETES MELLITUS
     Route: 058
  4. SOLOSTAR [Suspect]
  5. HUMALOG [Concomitant]
     Indication: TYPE 1 DIABETES MELLITUS
     Route: 058
  6. APROVEL [Concomitant]
     Indication: BLOOD PRESSURE
     Route: 048
  7. BALCOR [Concomitant]
     Indication: BLOOD PRESSURE
     Route: 048
  8. ATORVASTATIN [Concomitant]
     Route: 048
  9. ASPIRIN [Concomitant]
     Route: 048
  10. TICLOPIDINE HCL [Concomitant]
     Route: 048
  11. CILOSTAZOL [Concomitant]
     Route: 048
  12. BENERVA [Concomitant]
     Dosage: 2 TABLETS
     Route: 048
  13. PURAN T4 [Concomitant]
     Route: 048
  14. CILOSTAZOL [Concomitant]
     Route: 048

REACTIONS (4)
  - BREAST CANCER [None]
  - DIABETES MELLITUS INADEQUATE CONTROL [None]
  - IMMUNODEFICIENCY [None]
  - NAIL INFECTION [None]
